FAERS Safety Report 18867409 (Version 2)
Quarter: 2021Q1

REPORT INFORMATION
  Report Type: Spontaneous
  Country: US (occurrence: US)
  Receive Date: 20210209
  Receipt Date: 20210212
  Transmission Date: 20210420
  Serious: Yes (Other)
  Sender: FDA-Public Use
  Company Number: US-PFIZER INC-2021102950

PATIENT
  Sex: Male

DRUGS (1)
  1. PANCURONIUM BROMIDE. [Suspect]
     Active Substance: PANCURONIUM BROMIDE
     Dosage: UNK (TWO OCCASIONS)

REACTIONS (3)
  - Physical assault [Unknown]
  - Intentional product misuse [Unknown]
  - Poisoning deliberate [Unknown]
